FAERS Safety Report 7792992-8 (Version None)
Quarter: 2011Q3

REPORT INFORMATION
  Report Type: 
  Country: None (occurrence: None)
  Receive Date: 20110930
  Receipt Date: 20110930
  Transmission Date: 20111222
  Serious: Yes (Other)
  Sender: FDA-Public Use
  Company Number: None

PATIENT
  Age: 67 Year
  Sex: Female
  Weight: 68.0396 kg

DRUGS (2)
  1. LOSARTAN POTASSIUM [Suspect]
     Indication: HYPERTENSION
     Dosage: 25 MG ONE BID ORAL
     Route: 048
     Dates: start: 20100901, end: 20110801
  2. LOSARTAN POTASSIUM [Suspect]
     Indication: HYPERTENSION
     Dosage: 25 MG ONE BID ORAL
     Route: 048
     Dates: start: 20100901, end: 20110501

REACTIONS (6)
  - SKIN DISORDER [None]
  - PANIC REACTION [None]
  - NO THERAPEUTIC RESPONSE [None]
  - RASH [None]
  - DERMATITIS CONTACT [None]
  - URTICARIA [None]
